FAERS Safety Report 9343777 (Version 1)
Quarter: 2013Q2

REPORT INFORMATION
  Report Type: Spontaneous
  Country: US (occurrence: US)
  Receive Date: 20130612
  Receipt Date: 20130612
  Transmission Date: 20140414
  Serious: No
  Sender: FDA-Public Use
  Company Number: US-JNJFOC-20130522184

PATIENT
  Sex: Female
  Weight: 58.06 kg

DRUGS (4)
  1. INVEGA SUSTENNA [Suspect]
     Indication: SCHIZOPHRENIA
     Route: 030
     Dates: end: 2013
  2. INVEGA [Suspect]
     Indication: SCHIZOPHRENIA
     Route: 048
     Dates: start: 2013
  3. OLANZAPINE [Concomitant]
     Indication: SCHIZOPHRENIA
     Route: 048
     Dates: start: 2013
  4. OXCARBAZEPINE [Concomitant]
     Indication: SCHIZOPHRENIA
     Route: 048
     Dates: start: 2013

REACTIONS (4)
  - Infertility female [Not Recovered/Not Resolved]
  - Stress [Recovered/Resolved]
  - Pain [Recovered/Resolved]
  - Hypersomnia [Not Recovered/Not Resolved]
